FAERS Safety Report 9206240 (Version 1)
Quarter: 2013Q2

REPORT INFORMATION
  Report Type: Spontaneous
  Country: US (occurrence: US)
  Receive Date: 20130403
  Receipt Date: 20130403
  Transmission Date: 20140414
  Serious: Yes (Other)
  Sender: FDA-Public Use
  Company Number: US-PFIZER INC-2013104759

PATIENT
  Age: 58 Year
  Sex: Female
  Weight: 59.41 kg

DRUGS (2)
  1. LYRICA [Suspect]
     Indication: BACK DISORDER
     Dosage: UNK
     Dates: start: 2007, end: 201303
  2. LYRICA [Suspect]
     Indication: ARTHROPATHY

REACTIONS (7)
  - Hypersensitivity [Unknown]
  - Swelling face [Unknown]
  - Oedema peripheral [Unknown]
  - Urticaria [Unknown]
  - Pruritus [Unknown]
  - Pain [Unknown]
  - Abdominal pain upper [Unknown]
